FAERS Safety Report 4365677-8 (Version None)
Quarter: 2004Q2

REPORT INFORMATION
  Report Type: 
  Country: None (occurrence: None)
  Receive Date: 20040527
  Receipt Date: 20040517
  Transmission Date: 20050107
  Serious: Yes (Other)
  Sender: FDA-Public Use
  Company Number: PHRM2004FR01883

PATIENT
  Age: 70 Year
  Sex: Male

DRUGS (2)
  1. EXELON [Suspect]
     Dosage: 3 MG, BID
     Route: 048
     Dates: start: 20031001
  2. MODOPAR [Concomitant]
     Indication: PARKINSON'S DISEASE

REACTIONS (2)
  - HEPATOMEGALY [None]
  - WEIGHT DECREASED [None]
